FAERS Safety Report 10575277 (Version 1)
Quarter: 2014Q4

REPORT INFORMATION
  Report Type: Spontaneous
  Country: US (occurrence: None)
  Receive Date: 20141107
  Receipt Date: 20141107
  Transmission Date: 20150529
  Serious: Yes (Other)
  Sender: FDA-Public Use
  Company Number: KAD201410-001359

PATIENT
  Sex: Female

DRUGS (2)
  1. RIBAVIRIN(RIBAVIRIN) [Suspect]
     Active Substance: RIBAVIRIN
     Indication: CHRONIC HEPATITIS C
  2. INTERFERON ALFACON-1 [Suspect]
     Active Substance: INTERFERON ALFACON-1
     Indication: CHRONIC HEPATITIS C

REACTIONS (3)
  - Nephrotic syndrome [None]
  - Focal segmental glomerulosclerosis [None]
  - Nephropathy toxic [None]
